FAERS Safety Report 8252227-9 (Version None)
Quarter: 2012Q2

REPORT INFORMATION
  Report Type: 
  Country: None (occurrence: None)
  Receive Date: 20120402
  Receipt Date: 20111021
  Transmission Date: 20120825
  Serious: No
  Sender: FDA-Public Use
  Company Number: US-ABBOTT-11P-163-0855487-00

PATIENT
  Sex: Male
  Weight: 56.296 kg

DRUGS (12)
  1. VITAMIN B COMPLEX CAP [Concomitant]
     Indication: PRODUCT USED FOR UNKNOWN INDICATION
     Dosage: AS DIRECTED
  2. FISH OIL [Concomitant]
     Indication: PRODUCT USED FOR UNKNOWN INDICATION
  3. ANDROGEL [Suspect]
     Indication: BLOOD TESTOSTERONE DECREASED
     Dates: start: 20110601, end: 20110801
  4. ELCARNITINE [Concomitant]
     Indication: PRODUCT USED FOR UNKNOWN INDICATION
  5. PROBIOTIC [Concomitant]
     Indication: PRODUCT USED FOR UNKNOWN INDICATION
     Dosage: 13 BILLION CAPSULE 1 1-2WK
  6. VITAMIN D [Concomitant]
     Indication: PRODUCT USED FOR UNKNOWN INDICATION
  7. VITAMIN B-12 [Concomitant]
     Indication: PRODUCT USED FOR UNKNOWN INDICATION
     Route: 048
  8. COREG [Concomitant]
     Indication: PRODUCT USED FOR UNKNOWN INDICATION
  9. ASPIRIN [Concomitant]
     Indication: PRODUCT USED FOR UNKNOWN INDICATION
  10. CO Q-10 [Concomitant]
     Indication: PRODUCT USED FOR UNKNOWN INDICATION
     Dosage: 100-200 MG CAPSULE
  11. NIACIN [Concomitant]
     Indication: PRODUCT USED FOR UNKNOWN INDICATION
  12. RIBOSE [Concomitant]
     Indication: PRODUCT USED FOR UNKNOWN INDICATION

REACTIONS (12)
  - BLOOD TESTOSTERONE DECREASED [None]
  - ASTHENIA [None]
  - WEIGHT DECREASED [None]
  - CONGENITAL ARTERIAL MALFORMATION [None]
  - BENIGN PROSTATIC HYPERPLASIA [None]
  - RASH GENERALISED [None]
  - HYPERLIPIDAEMIA [None]
  - BLOOD TESTOSTERONE INCREASED [None]
  - HYPOMAGNESAEMIA [None]
  - BLOOD TESTOSTERONE [None]
  - HERNIA [None]
  - HOMOCYSTINAEMIA [None]
